FAERS Safety Report 18192060 (Version 2)
Quarter: 2020Q4

REPORT INFORMATION
  Report Type: Spontaneous
  Country: BR (occurrence: BR)
  Receive Date: 20200825
  Receipt Date: 20201016
  Transmission Date: 20210113
  Serious: No
  Sender: FDA-Public Use
  Company Number: BR-TEVA-2020-BR-1820295

PATIENT
  Age: 65 Year
  Sex: Female
  Weight: 42 kg

DRUGS (5)
  1. MAGNESIUM CHLORIDE. [Concomitant]
     Active Substance: MAGNESIUM CHLORIDE
  2. CONDRES [Concomitant]
     Dates: start: 2018
  3. OSTEOFIX [Concomitant]
     Dates: start: 2019
  4. ACTONEL CHRONOS (RISEDRONATE SODIUM) [Suspect]
     Active Substance: RISEDRONATE SODIUM
     Indication: OSTEOPOROSIS
     Dosage: FASTING
     Route: 048
     Dates: start: 20200805, end: 202008
  5. OMEGA 3 [Concomitant]
     Active Substance: OMEGA-3 FATTY ACIDS
     Dosage: 1000 MG;
     Dates: start: 2018

REACTIONS (7)
  - Chest discomfort [Recovered/Resolved]
  - Gastrooesophageal reflux disease [Recovered/Resolved]
  - Vomiting [Recovered/Resolved]
  - Dizziness [Recovered/Resolved]
  - Asthenia [Recovered/Resolved]
  - Off label use [Unknown]
  - Diarrhoea [Recovered/Resolved]

NARRATIVE: CASE EVENT DATE: 2020
